FAERS Safety Report 19895765 (Version 1)
Quarter: 2021Q3

REPORT INFORMATION
  Report Type: Spontaneous
  Country: US (occurrence: US)
  Receive Date: 20210929
  Receipt Date: 20210929
  Transmission Date: 20211014
  Serious: No
  Sender: FDA-Public Use
  Company Number: US-PFIZER INC-202101134149

PATIENT
  Age: 15 Year
  Sex: Male

DRUGS (2)
  1. GENOTROPIN [Suspect]
     Active Substance: SOMATROPIN
     Indication: SHORT STATURE
     Dosage: 1.6 MG PER NIGHT EVERY NIGHT
  2. GENOTROPIN [Suspect]
     Active Substance: SOMATROPIN
     Dosage: 1.4 MG PER NIGHT EVERY NIGHT

REACTIONS (8)
  - Device power source issue [Unknown]
  - Device information output issue [Unknown]
  - Headache [Recovering/Resolving]
  - Device use issue [Unknown]
  - Migraine [Recovering/Resolving]
  - Arthralgia [Recovering/Resolving]
  - Device issue [Unknown]
  - Drug dose omission by device [Unknown]

NARRATIVE: CASE EVENT DATE: 20210829
